FAERS Safety Report 8552291-3 (Version None)
Quarter: 2012Q3

REPORT INFORMATION
  Report Type: 
  Country: None (occurrence: None)
  Receive Date: 20120723
  Receipt Date: 20120723
  Transmission Date: 20120928
  Serious: No
  Sender: FDA-Public Use
  Company Number: None

PATIENT
  Age: 81 Year
  Sex: Female
  Weight: 58.9676 kg

DRUGS (1)
  1. ACETAMINOPHEN [Suspect]
     Indication: HEADACHE
     Dosage: 2 CAPLETS EVERY 6 HRS. PO
     Route: 048
     Dates: start: 20120720, end: 20120721

REACTIONS (3)
  - EYELIDS PRURITUS [None]
  - DERMATITIS CONTACT [None]
  - RASH PRURITIC [None]
